FAERS Safety Report 4553001-7 (Version None)
Quarter: 2005Q1

REPORT INFORMATION
  Report Type: 
  Country: None (occurrence: None)
  Receive Date: 20050112
  Receipt Date: 20050112
  Transmission Date: 20050727
  Serious: Yes (Other)
  Sender: FDA-Public Use
  Company Number: None

PATIENT
  Age: 66 Year
  Sex: Male
  Weight: 61.2356 kg

DRUGS (4)
  1. SINEMET [Suspect]
     Indication: PARKINSON'S DISEASE
     Dosage: 1 QID
  2. .. [Concomitant]
     Indication: PARKINSON'S DISEASE
     Dosage: 1 QID
  3. REQUIP [Concomitant]
  4. MIRTAZAPINE [Concomitant]

REACTIONS (3)
  - DRUG EFFECT DECREASED [None]
  - PARAESTHESIA [None]
  - PHARMACEUTICAL PRODUCT COMPLAINT [None]
